FAERS Safety Report 15360984 (Version 1)
Quarter: 2018Q3

REPORT INFORMATION
  Report Type: Spontaneous
  Country: US (occurrence: US)
  Receive Date: 20180907
  Receipt Date: 20180907
  Transmission Date: 20181010
  Serious: Yes (Other)
  Sender: FDA-Public Use
  Company Number: US-ROCHE-2179781

PATIENT
  Age: 51 Year
  Sex: Female
  Weight: 74.91 kg

DRUGS (6)
  1. KLONOPIN [Suspect]
     Active Substance: CLONAZEPAM
     Indication: POST-TRAUMATIC STRESS DISORDER
     Dosage: KLONOPIN BRAND ;ONGOING: NO
     Route: 065
  2. PAXIL [Concomitant]
     Active Substance: PAROXETINE HYDROCHLORIDE
     Route: 065
  3. CLONAZEPAM. [Suspect]
     Active Substance: CLONAZEPAM
     Indication: PRODUCT USED FOR UNKNOWN INDICATION
     Dosage: MYLAN BRAND, ONGOING YES
     Route: 065
     Dates: start: 201808
  4. KLONOPIN [Suspect]
     Active Substance: CLONAZEPAM
     Dosage: ONGOING: UNKNOWN
     Route: 065
     Dates: start: 1993
  5. CLONAZEPAM. [Suspect]
     Active Substance: CLONAZEPAM
     Dosage: ONGOING NO
     Route: 065
     Dates: end: 201807
  6. LEVOXYL [Concomitant]
     Active Substance: LEVOTHYROXINE SODIUM
     Route: 065

REACTIONS (15)
  - Drug ineffective [Unknown]
  - Vision blurred [Recovering/Resolving]
  - Malaise [Recovering/Resolving]
  - Palpitations [Recovering/Resolving]
  - Insomnia [Recovering/Resolving]
  - Drug withdrawal syndrome [Recovering/Resolving]
  - Nightmare [Recovering/Resolving]
  - Blood oestrogen abnormal [Recovering/Resolving]
  - Dissociation [Recovering/Resolving]
  - Agitation [Recovering/Resolving]
  - Headache [Recovering/Resolving]
  - Haemorrhage [Unknown]
  - Hormone level abnormal [Recovering/Resolving]
  - Depersonalisation/derealisation disorder [Recovering/Resolving]
  - Pruritus [Recovering/Resolving]

NARRATIVE: CASE EVENT DATE: 201807
